FAERS Safety Report 5338392-1 (Version None)
Quarter: 2007Q2

REPORT INFORMATION
  Report Type: 
  Country: None (occurrence: None)
  Receive Date: 20070530
  Receipt Date: 20070521
  Transmission Date: 20071010
  Serious: Yes (Other)
  Sender: FDA-Public Use
  Company Number: FR-ELI_LILLY_AND_COMPANY-FR200705005747

PATIENT
  Age: 82 Year
  Sex: Male

DRUGS (1)
  1. HUMALOG [Suspect]
     Dosage: 28 IU, 3/D
     Route: 058
     Dates: start: 20040101

REACTIONS (1)
  - WEIGHT INCREASED [None]
